FAERS Safety Report 5796234-4 (Version None)
Quarter: 2008Q3

REPORT INFORMATION
  Report Type: 
  Country: None (occurrence: None)
  Receive Date: 20080701
  Receipt Date: 20080619
  Transmission Date: 20090109
  Serious: Yes (Hospitalization)
  Sender: FDA-Public Use
  Company Number: US-ROCHE-571460

PATIENT
  Sex: Female
  Weight: 74.4 kg

DRUGS (6)
  1. PEG-INTERFERON A-2A (RO 25-8310) [Suspect]
     Route: 065
     Dates: start: 20061002
  2. RIBAVIRIN [Suspect]
     Dosage: FORMULATION: PILL
     Route: 065
     Dates: start: 20061002
  3. HUMULIN 70/30 [Concomitant]
     Indication: DIABETES MELLITUS
     Dosage: DRUG REPORTED AS HUMULIN INSULIN 70/30
  4. METFORMIN [Concomitant]
     Indication: DIABETES MELLITUS
  5. ENALAPRIL MALEATE [Concomitant]
  6. ISOSORBIDE DINITRATE [Concomitant]

REACTIONS (1)
  - CORONARY ARTERY OCCLUSION [None]
